FAERS Safety Report 9473553 (Version 2)
Quarter: 2014Q3

REPORT INFORMATION
  Report Type: Spontaneous
  Country: US (occurrence: US)
  Receive Date: 20130823
  Receipt Date: 20140827
  Transmission Date: 20150326
  Serious: No
  Sender: FDA-Public Use
  Company Number: US-GALDERMA-US13001873

PATIENT
  Age: 45 Year
  Sex: Female

DRUGS (3)
  1. JUICE PLUS FRUIT AND VEGGIE [Concomitant]
     Dates: start: 2009
  2. BEAUTY CONTROL FOUNDATION AND BLUSH [Concomitant]
     Dates: start: 2000
  3. METROGEL [Suspect]
     Active Substance: METRONIDAZOLE
     Indication: ROSACEA
     Dosage: 1%
     Route: 061
     Dates: start: 201306, end: 201306

REACTIONS (5)
  - Hypersensitivity [Recovered/Resolved]
  - Rash pruritic [Recovered/Resolved]
  - Drug ineffective [Recovered/Resolved]
  - Urticaria [Recovered/Resolved]
  - Inappropriate schedule of drug administration [Recovered/Resolved]

NARRATIVE: CASE EVENT DATE: 201306
